FAERS Safety Report 7865684-4 (Version None)
Quarter: 2011Q4

REPORT INFORMATION
  Report Type: 
  Country: None (occurrence: None)
  Receive Date: 20111028
  Receipt Date: 20110207
  Transmission Date: 20120403
  Serious: No
  Sender: FDA-Public Use
  Company Number: US-GLAXOSMITHKLINE-A0912264A

PATIENT
  Age: 70 Year
  Sex: Male

DRUGS (5)
  1. ADVAIR DISKUS 100/50 [Suspect]
     Indication: CHRONIC OBSTRUCTIVE PULMONARY DISEASE
     Dosage: 1PUFF TWICE PER DAY
     Route: 055
  2. LOTENSIN [Concomitant]
  3. NORVASC [Concomitant]
  4. INSULIN [Concomitant]
  5. ALBUTEROL [Concomitant]

REACTIONS (2)
  - DYSPNOEA [None]
  - EXPIRED DRUG ADMINISTERED [None]
